FAERS Safety Report 5708004-3 (Version None)
Quarter: 2008Q2

REPORT INFORMATION
  Report Type: 
  Country: None (occurrence: None)
  Receive Date: 20080417
  Receipt Date: 20080403
  Transmission Date: 20081010
  Serious: Yes (Death)
  Sender: FDA-Public Use
  Company Number: GR-AMGEN-UK273012

PATIENT
  Age: 75 Year
  Sex: Male

DRUGS (26)
  1. NEULASTA [Suspect]
     Indication: CHEMOTHERAPY
     Route: 058
     Dates: start: 20080123
  2. DIANICOTYL [Concomitant]
     Route: 048
     Dates: start: 20030221
  3. RIFADIN [Concomitant]
     Route: 048
     Dates: start: 20080221
  4. PYRAZINAMIDE [Concomitant]
     Route: 048
     Dates: start: 20080221
  5. PREZOLON [Concomitant]
     Route: 042
     Dates: start: 20080227, end: 20080304
  6. BESIX [Concomitant]
     Route: 048
     Dates: start: 20080223
  7. PARIET [Concomitant]
     Route: 048
     Dates: start: 20080101
  8. MEDROL [Concomitant]
     Route: 048
     Dates: start: 20080101, end: 20080202
  9. MERONEM [Concomitant]
     Route: 042
     Dates: start: 20080130, end: 20080221
  10. SEPTRIN [Concomitant]
     Route: 048
     Dates: start: 20071101, end: 20080208
  11. VFEND [Concomitant]
     Route: 042
     Dates: start: 20080208, end: 20080222
  12. SEPTRIN FORTE [Concomitant]
     Route: 042
     Dates: start: 20080208, end: 20080222
  13. TARGOCID [Concomitant]
     Route: 042
     Dates: start: 20080315, end: 20080321
  14. PRIMAXIN [Concomitant]
     Route: 042
     Dates: start: 20080315, end: 20080321
  15. MERONEM [Concomitant]
     Route: 042
     Dates: start: 20080321, end: 20080328
  16. KLARICID [Concomitant]
     Route: 042
     Dates: start: 20080321, end: 20080326
  17. COLISTIN SULFATE [Concomitant]
     Route: 042
     Dates: start: 20080321
  18. UNSPECIFIED ANTINEOPLASTIC AGENT [Concomitant]
  19. ALBUMIN (HUMAN) [Concomitant]
     Dates: start: 20080315
  20. AMBISOME [Concomitant]
     Dates: start: 20080321
  21. FRAXIPARINE [Concomitant]
     Dates: start: 20080323, end: 20080331
  22. ALLOPURINOL [Concomitant]
     Dates: start: 20080326, end: 20080331
  23. GANCICLOVIR [Concomitant]
     Dates: start: 20080328
  24. GRANULOKINE [Concomitant]
     Dates: start: 20080328
  25. CO-TRIMOXAZOLE [Concomitant]
     Dates: start: 20080323, end: 20080328
  26. ETHAMBUTOL HYDROCHLORIDE [Concomitant]
     Dates: start: 20080221

REACTIONS (1)
  - SEPSIS [None]
